FAERS Safety Report 16987831 (Version 12)
Quarter: 2022Q1

REPORT INFORMATION
  Report Type: Spontaneous
  Country: DE (occurrence: DE)
  Receive Date: 20191104
  Receipt Date: 20220119
  Transmission Date: 20220423
  Serious: Yes (Death, Life-Threatening, Other)
  Sender: FDA-Public Use
  Company Number: DE-AMGEN-DEUSP2019180182

PATIENT

DRUGS (5)
  1. CARFILZOMIB [Suspect]
     Active Substance: CARFILZOMIB
     Indication: Plasma cell myeloma
     Dosage: UNK
     Route: 065
  2. ISATUXIMAB [Suspect]
     Active Substance: ISATUXIMAB
     Indication: Plasma cell myeloma
     Dosage: UNK
     Route: 065
  3. LENALIDOMIDE [Suspect]
     Active Substance: LENALIDOMIDE
     Indication: Plasma cell myeloma
     Dosage: UNK
     Route: 065
  4. DEXAMETHASONE [Suspect]
     Active Substance: DEXAMETHASONE
     Indication: Plasma cell myeloma
     Dosage: UNK
     Route: 065
  5. MELPHALAN [Concomitant]
     Active Substance: MELPHALAN
     Indication: Plasma cell myeloma
     Dosage: UNK

REACTIONS (22)
  - Neutropenia [Unknown]
  - Leukopenia [Unknown]
  - Thrombocytopenia [Unknown]
  - Death [Fatal]
  - Neutropenic sepsis [Fatal]
  - Cerebrovascular disorder [Unknown]
  - Infection [Unknown]
  - Plasma cell myeloma [Not Recovered/Not Resolved]
  - Ventricular tachycardia [Unknown]
  - Lymphopenia [Unknown]
  - Cardiac failure [Unknown]
  - Pneumonia [Fatal]
  - Anaemia [Unknown]
  - Hypertension [Unknown]
  - Diarrhoea [Unknown]
  - Therapy partial responder [Unknown]
  - Adverse event [Unknown]
  - Off label use [Unknown]
  - Upper respiratory tract infection [Unknown]
  - Peripheral sensory neuropathy [Unknown]
  - Pyrexia [Unknown]
  - Nasopharyngitis [Unknown]
